FAERS Safety Report 16818157 (Version 1)
Quarter: 2019Q3

REPORT INFORMATION
  Report Type: Spontaneous
  Country: US (occurrence: US)
  Receive Date: 20190917
  Receipt Date: 20190917
  Transmission Date: 20191005
  Serious: No
  Sender: FDA-Public Use
  Company Number: US-PERRIGO-19US007745

PATIENT
  Age: 58 Year
  Sex: Male
  Weight: 81.63 kg

DRUGS (9)
  1. TOPAMAX [Concomitant]
     Active Substance: TOPIRAMATE
     Indication: URINARY INCONTINENCE
     Dosage: UNK
     Route: 065
     Dates: start: 2019
  2. ALENDRONATE [Concomitant]
     Active Substance: ALENDRONATE SODIUM
     Indication: OSTEOPOROSIS
     Dosage: UNK, WEEKLY
     Route: 065
  3. CIALIS [Concomitant]
     Active Substance: TADALAFIL
     Indication: URINARY INCONTINENCE
     Dosage: UNK
     Route: 065
  4. CIALIS [Concomitant]
     Active Substance: TADALAFIL
     Indication: HYDROCEPHALUS
  5. NORTRIPTYLINE [Concomitant]
     Active Substance: NORTRIPTYLINE
     Indication: HYDROCEPHALUS
  6. TOPAMAX [Concomitant]
     Active Substance: TOPIRAMATE
     Indication: HYDROCEPHALUS
  7. TESTOSTERONE. [Suspect]
     Active Substance: TESTOSTERONE
     Indication: MUSCLE ATROPHY
     Dosage: 40.5 MG, QD
     Route: 061
     Dates: start: 201901, end: 20190607
  8. CARVEDILOL. [Concomitant]
     Active Substance: CARVEDILOL
     Indication: BLOOD PRESSURE ABNORMAL
     Dosage: UNK
     Route: 065
  9. NORTRIPTYLINE [Concomitant]
     Active Substance: NORTRIPTYLINE
     Indication: URINARY INCONTINENCE
     Dosage: UNK
     Route: 065

REACTIONS (4)
  - Muscle spasms [Recovering/Resolving]
  - Drug ineffective for unapproved indication [Unknown]
  - Product administered at inappropriate site [Recovered/Resolved]
  - Withdrawal syndrome [Recovering/Resolving]

NARRATIVE: CASE EVENT DATE: 201901
